FAERS Safety Report 15887375 (Version 1)
Quarter: 2019Q1

REPORT INFORMATION
  Report Type: Spontaneous
  Country: PL (occurrence: PL)
  Receive Date: 20190130
  Receipt Date: 20190130
  Transmission Date: 20190417
  Serious: Yes (Other)
  Sender: FDA-Public Use
  Company Number: PL-TEVA-2019-PL-1003282

PATIENT
  Age: 62 Year

DRUGS (22)
  1. OXALIPLATIN. [Suspect]
     Active Substance: OXALIPLATIN
     Indication: PANCREATIC CARCINOMA
     Route: 065
  2. FUROSEMIDE. [Concomitant]
     Active Substance: FUROSEMIDE
     Route: 065
  3. LACTULOSE. [Concomitant]
     Active Substance: LACTULOSE
     Indication: CONSTIPATION PROPHYLAXIS
     Dosage: 3 X 20ML
     Route: 065
  4. ALPRAZOLAM. [Concomitant]
     Active Substance: ALPRAZOLAM
     Route: 065
  5. KETOPROFEN FORTE [Concomitant]
     Route: 065
  6. FENTANYL TRANSDERMAL SYSTEM [Suspect]
     Active Substance: FENTANYL
     Dosage: EVERY 3 DAYS
     Route: 062
  7. MORPHINE [Suspect]
     Active Substance: MORPHINE
     Indication: CANCER PAIN
     Dosage: AS NEEDED; FORMULATION: IMMEDIATE RELEASE
     Route: 048
  8. OXYCODONE [Suspect]
     Active Substance: OXYCODONE
     Indication: CANCER PAIN
     Dosage: AND INCREASED
     Route: 065
  9. CALCIUM FOLINATE [Suspect]
     Active Substance: LEUCOVORIN CALCIUM
     Indication: PANCREATIC CARCINOMA
     Route: 065
  10. GABAPENTIN. [Concomitant]
     Active Substance: GABAPENTIN
     Indication: POLYNEUROPATHY
     Dosage: THREE TIMES A DAY
     Route: 065
  11. OXYCODONE [Suspect]
     Active Substance: OXYCODONE
     Indication: CANCER PAIN
     Dosage: THE DOSE OF OXYCODONE WAS INCREASED TO 200 MG/DAY WITH ROTATING WITHIN 3 DAYS BY 1/3 OF THE DAILY...
     Route: 065
  12. KETOPROFEN DUO1 [Concomitant]
     Dosage: PRN
     Route: 065
  13. FENTANYL TRANSDERMAL SYSTEM [Suspect]
     Active Substance: FENTANYL
     Route: 062
  14. FLUOROURACIL. [Suspect]
     Active Substance: FLUOROURACIL
     Indication: PANCREATIC CARCINOMA
     Route: 065
  15. SPIRONOLACTONE. [Concomitant]
     Active Substance: SPIRONOLACTONE
     Dosage: EVERY OTHER DAY
     Route: 065
  16. PANCREATIN [Concomitant]
     Active Substance: PANCRELIPASE
     Dosage: 25000 UNITS ONCE A DAY WITH A MAIN MEAL
     Route: 065
  17. FENTANYL BUCCAL [Suspect]
     Active Substance: FENTANYL CITRATE
     Route: 002
  18. IRINOTECAN [Suspect]
     Active Substance: IRINOTECAN
     Indication: PANCREATIC CARCINOMA
     Route: 065
  19. FENTANYL TRANSDERMAL SYSTEM [Suspect]
     Active Substance: FENTANYL
     Indication: CANCER PAIN
     Dosage: EVERY 3 DAYS
     Route: 062
  20. FENTANYL BUCCAL [Suspect]
     Active Substance: FENTANYL CITRATE
     Indication: BREAKTHROUGH PAIN
     Route: 002
  21. GABAPENTIN. [Concomitant]
     Active Substance: GABAPENTIN
     Indication: CANCER PAIN
     Dosage: THREE TIMES A DAY AND GRADUALLY INCREASED
     Route: 065
  22. METOPROLOL. [Concomitant]
     Active Substance: METOPROLOL
     Route: 065

REACTIONS (6)
  - Constipation [Unknown]
  - Vomiting [Recovered/Resolved]
  - Neutropenia [Unknown]
  - Nausea [Recovered/Resolved]
  - Polyneuropathy [Recovering/Resolving]
  - Neuropathy peripheral [None]
